FAERS Safety Report 7042006-2 (Version None)
Quarter: 2010Q4

REPORT INFORMATION
  Report Type: 
  Country: None (occurrence: None)
  Receive Date: 20101013
  Receipt Date: 20100111
  Transmission Date: 20110411
  Serious: No
  Sender: FDA-Public Use
  Company Number: US-ASTRAZENECA-2010SE01189

PATIENT
  Age: 74 Year
  Sex: Female
  Weight: 69.9 kg

DRUGS (5)
  1. SYMBICORT [Suspect]
     Route: 055
  2. PREDNISONE [Concomitant]
  3. SPIRIVA [Concomitant]
  4. VENTOLIN [Concomitant]
  5. XOPENOX [Concomitant]

REACTIONS (1)
  - GLOSSODYNIA [None]
